FAERS Safety Report 11024321 (Version 1)
Quarter: 2015Q2

REPORT INFORMATION
  Report Type: Report from Study
  Country: US (occurrence: US)
  Receive Date: 20150414
  Receipt Date: 20150414
  Transmission Date: 20150821
  Serious: Yes (Other)
  Sender: FDA-Public Use
  Company Number: US-GILEAD-2015-0142003

PATIENT
  Age: 53 Year
  Sex: Male

DRUGS (1)
  1. LEDIPASVIR/SOFOSBUVIR [Suspect]
     Active Substance: LEDIPASVIR\SOFOSBUVIR
     Indication: CHRONIC HEPATITIS C
     Dosage: 1 DF, UNK
     Route: 048
     Dates: start: 20150306

REACTIONS (12)
  - Headache [Unknown]
  - Anxiety [Unknown]
  - Intestinal obstruction [Unknown]
  - Dyspnoea [Unknown]
  - Fatigue [Unknown]
  - Panic reaction [Unknown]
  - Prostatomegaly [Unknown]
  - Nausea [Unknown]
  - Weight increased [Unknown]
  - Vomiting [Unknown]
  - Pollakiuria [Unknown]
  - Gastrooesophageal reflux disease [Unknown]
